FAERS Safety Report 9212496 (Version 4)
Quarter: 2014Q3

REPORT INFORMATION
  Report Type: Report from Study
  Country: GB (occurrence: GB)
  Receive Date: 20130405
  Receipt Date: 20140904
  Transmission Date: 20150326
  Serious: Yes (Hospitalization, Disabling)
  Sender: FDA-Public Use
  Company Number: GB-MERCK-1304GBR001158

PATIENT
  Age: 78 Year
  Sex: Female

DRUGS (4)
  1. VORINOSTAT [Suspect]
     Active Substance: VORINOSTAT
     Indication: PLASMA CELL MYELOMA
     Dosage: 300 MG, CYCLICAL (D1-D7, D15-D21)
     Route: 048
     Dates: start: 20121009, end: 20130321
  2. CYCLOPHOSPHAMIDE. [Suspect]
     Active Substance: CYCLOPHOSPHAMIDE
     Indication: PLASMA CELL MYELOMA
     Dosage: 500 MG, D1+D8
     Route: 048
     Dates: start: 20130305
  3. DEXAMETHASONE. [Suspect]
     Active Substance: DEXAMETHASONE
     Indication: PLASMA CELL MYELOMA
     Dosage: 20 MG, D1-D4, D15-D18
     Route: 048
     Dates: start: 20120305
  4. LENALIDOMIDE [Suspect]
     Active Substance: LENALIDOMIDE
     Indication: PLASMA CELL MYELOMA
     Dosage: 25 MG CYCLICAL, (D1-D21)
     Route: 048
     Dates: start: 20121009, end: 20130324

REACTIONS (1)
  - Cerebrovascular accident [Recovered/Resolved with Sequelae]

NARRATIVE: CASE EVENT DATE: 20130325
